FAERS Safety Report 6328343-5 (Version None)
Quarter: 2009Q3

REPORT INFORMATION
  Report Type: 
  Country: None (occurrence: None)
  Receive Date: 20090825
  Receipt Date: 20090526
  Transmission Date: 20100115
  Serious: No
  Sender: FDA-Public Use
  Company Number: US-ABBOTT-09P-163-0576272-00

PATIENT
  Sex: Male
  Weight: 113.5 kg

DRUGS (11)
  1. SYNTHROID [Suspect]
     Indication: THYROIDECTOMY
     Route: 048
     Dates: start: 20090301
  2. MULTI-VITAMIN [Concomitant]
     Indication: VITAMIN SUPPLEMENTATION
     Route: 048
  3. ASPIRIN [Concomitant]
     Indication: PROPHYLAXIS
     Route: 048
  4. HIGH POTENCY B-50 [Concomitant]
     Indication: VITAMIN SUPPLEMENTATION
     Route: 048
  5. CELEBREX [Concomitant]
     Indication: ARTHROPATHY
     Route: 048
  6. LOVAZA [Concomitant]
     Indication: MEDICAL DIET
     Route: 048
  7. PERCOCET [Concomitant]
     Indication: ACCIDENT AT WORK
     Dosage: 10/325
     Route: 048
  8. PERCOCET [Concomitant]
  9. OXYCODONE [Concomitant]
     Indication: PAIN
     Route: 048
  10. OXYCODONE [Concomitant]
  11. CLONAZEPAM [Concomitant]
     Indication: ANXIETY DISORDER
     Dosage: 1.5 TAB
     Route: 048

REACTIONS (2)
  - FOOD CRAVING [None]
  - WEIGHT INCREASED [None]
